FAERS Safety Report 4786110-8 (Version None)
Quarter: 2005Q3

REPORT INFORMATION
  Report Type: 
  Country: None (occurrence: None)
  Receive Date: 20050930
  Receipt Date: 20050314
  Transmission Date: 20060218
  Serious: Yes (Death)
  Sender: FDA-Public Use
  Company Number: GXKR2005CA01651

PATIENT
  Age: 53 Year
  Sex: Female

DRUGS (5)
  1. LORAZEPAM SANDOZ (NGX)(LORAZEPAM) INJECTION [Suspect]
     Indication: SEDATION
     Dosage: 1-4 MG/PRIOR TO INSTILLATIONNOF HL 10, INTRAVENOUS
     Route: 042
     Dates: start: 20040301, end: 20040303
  2. HL 10 (HL10) [Suspect]
     Indication: ACUTE RESPIRATORY DISTRESS SYNDROME
     Dosage: 180 ML/1 IN 1 DAY, ENDOTRACHEAL
     Route: 007
     Dates: start: 20040301, end: 20040303
  3. HEPARIN [Concomitant]
  4. TAZOCIN (PIPERACILLIN SODIUM, TAZOBACTAM SODIUM) [Concomitant]
  5. HUMULIN (INSULIN HUMAN, INSULIN ISOPHANE, HUMAN BIOSYNTHETIC) [Concomitant]

REACTIONS (1)
  - PROCEDURAL HYPOTENSION [None]
